FAERS Safety Report 16277137 (Version 1)
Quarter: 2019Q2

REPORT INFORMATION
  Report Type: Spontaneous
  Country: US (occurrence: US)
  Receive Date: 20190506
  Receipt Date: 20190506
  Transmission Date: 20190711
  Serious: Yes (Hospitalization)
  Sender: FDA-Public Use
  Company Number: US-ELI_LILLY_AND_COMPANY-US201904015492

PATIENT
  Sex: Male
  Weight: 135.6 kg

DRUGS (7)
  1. ARISTADA [Concomitant]
     Active Substance: ARIPIPRAZOLE LAUROXIL
     Indication: SCHIZOPHRENIA
     Dosage: 441 MG, MONTHLY (1/M)
     Route: 030
  2. ZYPREXA [Suspect]
     Active Substance: OLANZAPINE
     Indication: SCHIZOPHRENIA
     Dosage: UNK, UNKNOWN
     Route: 065
     Dates: start: 2018, end: 20190416
  3. ZYRTEC [Concomitant]
     Active Substance: CETIRIZINE HYDROCHLORIDE
     Dosage: UNK, UNKNOWN
  4. DEPAKOTE [Concomitant]
     Active Substance: DIVALPROEX SODIUM
     Dosage: UNK, UNKNOWN
  5. FANAPT [Concomitant]
     Active Substance: ILOPERIDONE
     Dosage: UNK, UNKNOWN
  6. GEODON [ZIPRASIDONE HYDROCHLORIDE] [Concomitant]
     Dosage: UNK, UNKNOWN
     Dates: start: 201809
  7. INVEGA [Concomitant]
     Active Substance: PALIPERIDONE
     Dosage: UNK, UNKNOWN

REACTIONS (1)
  - Somnolence [Recovered/Resolved]
